FAERS Safety Report 15897704 (Version 1)
Quarter: 2019Q1

REPORT INFORMATION
  Report Type: Spontaneous
  Country: US (occurrence: US)
  Receive Date: 20190131
  Receipt Date: 20190131
  Transmission Date: 20190417
  Serious: No
  Sender: FDA-Public Use
  Company Number: US-ELI_LILLY_AND_COMPANY-US201901014739

PATIENT
  Sex: Female

DRUGS (2)
  1. HUMULIN R [Suspect]
     Active Substance: INSULIN HUMAN
     Indication: TYPE 2 DIABETES MELLITUS
     Dosage: 20 U, TID ON SLIDING SCALE
     Route: 058
     Dates: start: 2015
  2. DEXTROSE. [Suspect]
     Active Substance: DEXTROSE
     Indication: DIALYSIS
     Dosage: UNK UNK, UNKNOWN
     Route: 065

REACTIONS (3)
  - Blood glucose increased [Recovered/Resolved]
  - Expired product administered [Recovering/Resolving]
  - Blood glucose decreased [Recovered/Resolved]
